FAERS Safety Report 23827477 (Version 1)
Quarter: 2024Q2

REPORT INFORMATION
  Report Type: Spontaneous
  Country: US (occurrence: US)
  Receive Date: 20240507
  Receipt Date: 20240507
  Transmission Date: 20240716
  Serious: No
  Sender: FDA-Public Use
  Company Number: USA--2023-US-001071

PATIENT
  Sex: Female

DRUGS (2)
  1. BRIMONIDINE TARTRATE [Suspect]
     Active Substance: BRIMONIDINE TARTRATE
  2. LATANOPROST [Suspect]
     Active Substance: LATANOPROST

REACTIONS (2)
  - Ocular hyperaemia [Unknown]
  - Blood pressure decreased [Unknown]
